FAERS Safety Report 4873599-9 (Version None)
Quarter: 2005Q4

REPORT INFORMATION
  Report Type: 
  Country: None (occurrence: None)
  Receive Date: 20051201
  Receipt Date: 20050831
  Transmission Date: 20060501
  Serious: No
  Sender: FDA-Public Use
  Company Number: 2005PV001481

PATIENT
  Age: 42 Year
  Sex: Female
  Weight: 117.9352 kg

DRUGS (6)
  1. BYETTA [Suspect]
     Indication: DIABETES MELLITUS NON-INSULIN-DEPENDENT
     Dosage: SEE IMAGE
     Route: 058
  2. GLUCOPHAGE [Concomitant]
  3. LEVOXYL [Concomitant]
  4. EZETIMIBE [Concomitant]
  5. ESTROGEN [Concomitant]
  6. MULTIVITAMIN [Concomitant]

REACTIONS (8)
  - DIARRHOEA [None]
  - ERUCTATION [None]
  - HEADACHE [None]
  - INJECTION SITE PAIN [None]
  - NAUSEA [None]
  - RENAL PAIN [None]
  - URINE ODOUR ABNORMAL [None]
  - URTICARIA [None]
